FAERS Safety Report 14303970 (Version 1)
Quarter: 2017Q4

REPORT INFORMATION
  Report Type: Spontaneous
  Country: JP (occurrence: JP)
  Receive Date: 20171219
  Receipt Date: 20171219
  Transmission Date: 20180321
  Serious: Yes (Hospitalization, Other)
  Sender: FDA-Public Use
  Company Number: JP-OTSUKA-JP-2013-10068

PATIENT
  Age: 68 Year
  Sex: Male
  Weight: 52 kg

DRUGS (10)
  1. ABILIFY [Suspect]
     Active Substance: ARIPIPRAZOLE
     Indication: PERSECUTORY DELUSION
     Dosage: 1.5 MG, QD
     Route: 048
     Dates: start: 20110303, end: 20120302
  2. VALPROATE SODIUM. [Suspect]
     Active Substance: VALPROATE SODIUM
     Indication: ELECTROENCEPHALOGRAM ABNORMAL
  3. ABILIFY [Suspect]
     Active Substance: ARIPIPRAZOLE
     Indication: ABNORMAL BEHAVIOUR
  4. JANUVIA [Suspect]
     Active Substance: SITAGLIPTIN PHOSPHATE
     Route: 048
  5. VALPROATE SODIUM. [Suspect]
     Active Substance: VALPROATE SODIUM
     Indication: MOOD SWINGS
     Dosage: 17DEC09-06JAN10:100MG,TID  07JAN10-02MAR12:100MG,BID
     Route: 048
     Dates: start: 20091217, end: 20120302
  6. ABILIFY [Suspect]
     Active Substance: ARIPIPRAZOLE
     Indication: COMPULSIONS
  7. VALERIN [Suspect]
     Active Substance: VALPROATE SODIUM
     Indication: MOOD SWINGS
     Dosage: 100 MG, TID
     Route: 048
     Dates: start: 20091217, end: 20100106
  8. VALERIN [Suspect]
     Active Substance: VALPROATE SODIUM
     Indication: ELECTROENCEPHALOGRAM ABNORMAL
     Dosage: 100 MG, BID
     Route: 048
     Dates: start: 20100107, end: 20120302
  9. ABILIFY [Suspect]
     Active Substance: ARIPIPRAZOLE
     Indication: DISORIENTATION
  10. CRESTOR [Suspect]
     Active Substance: ROSUVASTATIN CALCIUM
     Route: 048

REACTIONS (4)
  - Herpes zoster [Unknown]
  - Rhabdomyolysis [Recovered/Resolved]
  - Gastroenteritis radiation [Unknown]
  - Haematuria [Recovered/Resolved]

NARRATIVE: CASE EVENT DATE: 201202
